FAERS Safety Report 7602578-3 (Version None)
Quarter: 2011Q2

REPORT INFORMATION
  Report Type: 
  Country: None (occurrence: None)
  Receive Date: 20110630
  Receipt Date: 20110613
  Transmission Date: 20111010
  Serious: Yes (Other)
  Sender: FDA-Public Use
  Company Number: B0728077A

PATIENT

DRUGS (1)
  1. ONDANSETRON HYDROCHLORIDE [Suspect]
     Indication: NAUSEA

REACTIONS (1)
  - SUPRAVENTRICULAR TACHYCARDIA [None]
